FAERS Safety Report 8829654 (Version 1)
Quarter: 2012Q4

REPORT INFORMATION
  Report Type: 
  Country: CA (occurrence: CA)
  Receive Date: 20121008
  Receipt Date: 20121008
  Transmission Date: 20130627
  Serious: Yes (Hospitalization, Other)
  Sender: FDA-Public Use
  Company Number: CA-ELI_LILLY_AND_COMPANY-CA201210002074

PATIENT
  Age: 85 Year
  Sex: Female

DRUGS (12)
  1. FORTEO [Suspect]
     Indication: OSTEOPOROSIS
     Dosage: 20 ug, qd
     Route: 058
     Dates: start: 20101203, end: 20120922
  2. PIOGLITAZONE [Concomitant]
  3. DOVONEX [Concomitant]
  4. APO-GLICLAZIDE [Concomitant]
  5. SULFASALAZINE [Concomitant]
  6. OMEPRAZOLE [Concomitant]
  7. CRESTOR [Concomitant]
  8. RAMIPRIL [Concomitant]
  9. NOVO-GESIC [Concomitant]
  10. TYLENOL ARTHRITIS [Concomitant]
  11. CALCIUM [Concomitant]
  12. VITAMIN D NOS [Concomitant]

REACTIONS (2)
  - Pelvic fracture [Not Recovered/Not Resolved]
  - Fall [Not Recovered/Not Resolved]
